FAERS Safety Report 17535638 (Version 1)
Quarter: 2020Q1

REPORT INFORMATION
  Report Type: Spontaneous
  Country: FI (occurrence: FI)
  Receive Date: 20200313
  Receipt Date: 20200313
  Transmission Date: 20200409
  Serious: Yes (Other)
  Sender: FDA-Public Use
  Company Number: FI-SA-2020SA060622

PATIENT
  Sex: Male

DRUGS (1)
  1. LEMTRADA [Suspect]
     Active Substance: ALEMTUZUMAB
     Dosage: UNK UNKUNK
     Route: 041
     Dates: start: 2016

REACTIONS (2)
  - Basedow^s disease [Unknown]
  - Coeliac disease [Unknown]

NARRATIVE: CASE EVENT DATE: 2018
